FAERS Safety Report 9318722 (Version 1)
Quarter: 2013Q2

REPORT INFORMATION
  Report Type: Spontaneous
  Country: US (occurrence: US)
  Receive Date: 20130530
  Receipt Date: 20130530
  Transmission Date: 20140414
  Serious: No
  Sender: FDA-Public Use
  Company Number: US-NOVEN-13US006405

PATIENT
  Age: 10 Year
  Sex: Female

DRUGS (4)
  1. DAYTRANA [Suspect]
     Indication: ATTENTION DEFICIT/HYPERACTIVITY DISORDER
     Dosage: 30 MG, UNK
     Route: 062
     Dates: start: 20130303
  2. COGENTIN [Concomitant]
     Dosage: 1 MG, UNK
     Route: 048
  3. ZOLOFT [Concomitant]
     Dosage: 12.5 MG, UNK
     Route: 048
  4. ABILIFY [Concomitant]
     Dosage: 4 MG, UNK
     Route: 048

REACTIONS (8)
  - Abnormal behaviour [None]
  - Oropharyngeal pain [Not Recovered/Not Resolved]
  - Dizziness [Not Recovered/Not Resolved]
  - Nausea [Not Recovered/Not Resolved]
  - Tic [Not Recovered/Not Resolved]
  - Incorrect drug administration duration [Unknown]
  - Incorrect drug administration duration [Not Recovered/Not Resolved]
  - Application site erythema [Not Recovered/Not Resolved]
